FAERS Safety Report 19326681 (Version 1)
Quarter: 2021Q2

REPORT INFORMATION
  Report Type: Spontaneous
  Country: JP (occurrence: JP)
  Receive Date: 20210528
  Receipt Date: 20210528
  Transmission Date: 20210717
  Serious: Yes (Other)
  Sender: FDA-Public Use
  Company Number: JP-009507513-2105JPN006556

PATIENT
  Age: 58 Year
  Sex: Male

DRUGS (6)
  1. VORINOSTAT [Suspect]
     Active Substance: VORINOSTAT
     Dosage: 400 MILLIGRAM, QD
  2. VORINOSTAT [Suspect]
     Active Substance: VORINOSTAT
     Indication: CUTANEOUS T-CELL LYMPHOMA
     Dosage: 1 MG/KG/WEEK, 8 CYCLES
  3. BEXAROTENE. [Concomitant]
     Active Substance: BEXAROTENE
     Indication: CUTANEOUS T-CELL LYMPHOMA
     Dosage: 225 MILLIGRAM, QD
     Route: 048
  4. BRENTUXIMAB VEDOTIN [Concomitant]
     Active Substance: BRENTUXIMAB VEDOTIN
     Indication: CUTANEOUS T-CELL LYMPHOMA
     Dosage: 1.8 MG/KG/3 WEEKS, 8 CYCLES
  5. BRENTUXIMAB VEDOTIN [Concomitant]
     Active Substance: BRENTUXIMAB VEDOTIN
     Dosage: 1.8 MG/KG/3 WEEKS, 2 CYCLES
  6. MOGAMULIZUMAB [Concomitant]
     Active Substance: MOGAMULIZUMAB
     Indication: CUTANEOUS T-CELL LYMPHOMA
     Dosage: 1 MG/KG/WEEK, 5 CYCLES

REACTIONS (2)
  - Drug-induced liver injury [Unknown]
  - Therapeutic product effect incomplete [Unknown]
